FAERS Safety Report 25417132 (Version 2)
Quarter: 2025Q2

REPORT INFORMATION
  Report Type: Report from Study
  Country: US (occurrence: US)
  Receive Date: 20250610
  Receipt Date: 20250624
  Transmission Date: 20250716
  Serious: Yes (Other)
  Sender: ABBVIE
  Company Number: US-ABBVIE-6315591

PATIENT
  Sex: Female

DRUGS (1)
  1. HUMIRA [Suspect]
     Active Substance: ADALIMUMAB
     Indication: Crohn^s disease
     Route: 058
     Dates: start: 20221111

REACTIONS (12)
  - Loss of consciousness [Not Recovered/Not Resolved]
  - Illness [Unknown]
  - Constipation [Not Recovered/Not Resolved]
  - Malaise [Not Recovered/Not Resolved]
  - Dizziness [Unknown]
  - Faeces discoloured [Unknown]
  - Feeling hot [Not Recovered/Not Resolved]
  - Hyperhidrosis [Unknown]
  - Device issue [Not Recovered/Not Resolved]
  - Injection site reaction [Unknown]
  - Feeling abnormal [Unknown]
  - Injection site haemorrhage [Unknown]

NARRATIVE: CASE EVENT DATE: 20250101
